FAERS Safety Report 7719403-2 (Version None)
Quarter: 2011Q3

REPORT INFORMATION
  Report Type: 
  Country: None (occurrence: None)
  Receive Date: 20110830
  Receipt Date: 20110819
  Transmission Date: 20111222
  Serious: Yes (Hospitalization)
  Sender: FDA-Public Use
  Company Number: US-JNJFOC-20110701518

PATIENT
  Sex: Female
  Weight: 90.72 kg

DRUGS (13)
  1. SIMPONI [Suspect]
     Indication: PSORIATIC ARTHROPATHY
     Route: 058
     Dates: start: 20100107
  2. ALBUTEROL SULFATE AUTOHALER [Concomitant]
     Route: 048
  3. LEVOXYL [Concomitant]
     Indication: THYROID DISORDER
     Route: 048
  4. AMLODIPINE [Concomitant]
     Indication: HYPERTENSION
     Route: 048
  5. ADVAIR DISKUS 100/50 [Concomitant]
     Indication: ASTHMA
     Route: 048
  6. BUMEX [Concomitant]
     Indication: HYPERTENSION
  7. SIMPONI [Suspect]
     Indication: RHEUMATOID ARTHRITIS
     Route: 058
     Dates: start: 20100107
  8. MIRAPEX [Concomitant]
     Indication: RESTLESS LEGS SYNDROME
     Route: 048
  9. VOLTAREN [Concomitant]
     Indication: RHEUMATOID ARTHRITIS
     Route: 048
  10. METHOTREXATE [Concomitant]
     Indication: RHEUMATOID ARTHRITIS
     Route: 048
  11. SINGULAIR [Concomitant]
     Indication: ASTHMA
     Route: 048
  12. XYZAL [Concomitant]
     Indication: NASAL CONGESTION
     Route: 048
  13. LYRICA [Concomitant]
     Indication: RESTLESS LEGS SYNDROME

REACTIONS (3)
  - OSTEOARTHRITIS [None]
  - DRUG EFFECT DECREASED [None]
  - EXOSTOSIS [None]
